FAERS Safety Report 6764980-1 (Version None)
Quarter: 2010Q2

REPORT INFORMATION
  Report Type: 
  Country: None (occurrence: None)
  Receive Date: 20100610
  Receipt Date: 20100528
  Transmission Date: 20101027
  Serious: Yes (Other)
  Sender: FDA-Public Use
  Company Number: PHHY2010US35481

PATIENT
  Sex: Female

DRUGS (3)
  1. RECLAST [Suspect]
     Indication: OSTEOPOROSIS
     Dosage: UNK
     Route: 042
     Dates: start: 20080401
  2. RECLAST [Suspect]
     Dosage: UNK
     Route: 042
     Dates: start: 20090401
  3. RECLAST [Suspect]
     Dosage: UNK
     Route: 042
     Dates: start: 20100401

REACTIONS (3)
  - GAIT DISTURBANCE [None]
  - PAIN IN EXTREMITY [None]
  - ROAD TRAFFIC ACCIDENT [None]
